FAERS Safety Report 10250922 (Version 2)
Quarter: 2014Q2

REPORT INFORMATION
  Report Type: Report from Study
  Country: US (occurrence: US)
  Receive Date: 20140620
  Receipt Date: 20140620
  Transmission Date: 20141212
  Serious: Yes (Death, Other)
  Sender: FDA-Public Use
  Company Number: US-B.I. PHARMACEUTICALS,INC./RIDGEFIELD-2013-BI-34926BI

PATIENT
  Age: 66 Year
  Sex: Male

DRUGS (2)
  1. GILOTRIF [Suspect]
     Indication: NON-SMALL CELL LUNG CANCER
     Dosage: 40 MG
     Route: 048
     Dates: start: 20131011, end: 20131023
  2. GILOTRIF [Suspect]
     Dosage: 30 MG
     Route: 048
     Dates: end: 20140522

REACTIONS (7)
  - Death [Fatal]
  - Rash [Not Recovered/Not Resolved]
  - Diarrhoea [Recovered/Resolved]
  - Epistaxis [Recovered/Resolved]
  - Acne [Unknown]
  - Diarrhoea [Unknown]
  - Epistaxis [Unknown]
